FAERS Safety Report 7618129-3 (Version None)
Quarter: 2011Q3

REPORT INFORMATION
  Report Type: 
  Country: None (occurrence: None)
  Receive Date: 20110718
  Receipt Date: 20110623
  Transmission Date: 20111222
  Serious: Yes (Hospitalization)
  Sender: FDA-Public Use
  Company Number: US-GLAXOSMITHKLINE-A0766658A

PATIENT
  Age: 55 Year
  Sex: Male
  Weight: 159.1 kg

DRUGS (3)
  1. AVANDIA [Suspect]
     Indication: TYPE 2 DIABETES MELLITUS
     Route: 048
     Dates: start: 20050209, end: 20070101
  2. ULTRACET [Concomitant]
  3. SYNTHROID [Concomitant]

REACTIONS (2)
  - CORONARY ARTERY DISEASE [None]
  - MYOCARDIAL INFARCTION [None]
